FAERS Safety Report 5485110-2 (Version None)
Quarter: 2007Q4

REPORT INFORMATION
  Report Type: 
  Country: None (occurrence: None)
  Receive Date: 20071015
  Receipt Date: 20071005
  Transmission Date: 20080405
  Serious: Yes (Other)
  Sender: FDA-Public Use
  Company Number: SE-JNJFOC-20071002497

PATIENT
  Age: 73 Year
  Sex: Male

DRUGS (1)
  1. IPREN [Suspect]
     Indication: PAIN
     Route: 048

REACTIONS (3)
  - AORTIC ANEURYSM [None]
  - FREEZING PHENOMENON [None]
  - MUSCLE TWITCHING [None]
